FAERS Safety Report 7152310-5 (Version None)
Quarter: 2010Q4

REPORT INFORMATION
  Report Type: 
  Country: None (occurrence: None)
  Receive Date: 20101123
  Receipt Date: 20101110
  Transmission Date: 20110411
  Serious: Yes (Hospitalization)
  Sender: FDA-Public Use
  Company Number: 2010110038

PATIENT
  Age: 90 Year
  Sex: Female

DRUGS (6)
  1. TORSEMIDE [Suspect]
     Dosage: 5 MG (2 IN 1 WK), ORAL
     Route: 048
     Dates: end: 20100620
  2. TILUR (ACEMETACIN) [Suspect]
     Dosage: 180 MG (90 MG, 2 IN 1 D), ORAL
     Route: 048
     Dates: end: 20100620
  3. LODINE [Suspect]
     Dosage: (AS REQUIRED), ORAL
     Route: 048
     Dates: end: 20100620
  4. LASIX [Suspect]
     Dosage: 40 MG (2 IN 1 WK), ORAL
     Route: 048
     Dates: end: 20100620
  5. MODURETIC (HYDROCHLOROTHIAZIDE, AMILORIDE HCL) [Concomitant]
  6. DALMADORM (FLURAZEPAM) [Concomitant]

REACTIONS (4)
  - DEHYDRATION [None]
  - DRUG ABUSE [None]
  - RENAL FAILURE [None]
  - RENAL TUBULAR NECROSIS [None]
